FAERS Safety Report 15236374 (Version 1)
Quarter: 2018Q3

REPORT INFORMATION
  Report Type: Spontaneous
  Country: US (occurrence: US)
  Receive Date: 20180803
  Receipt Date: 20180803
  Transmission Date: 20181010
  Serious: No
  Sender: FDA-Public Use
  Company Number: US-GALDERMA-US18007339

PATIENT
  Sex: Male

DRUGS (1)
  1. EPIDUO FORTE [Suspect]
     Active Substance: ADAPALENE\BENZOYL PEROXIDE
     Indication: PRODUCT USED FOR UNKNOWN INDICATION
     Dosage: 0.3%/2.5%
     Route: 061
     Dates: start: 2017

REACTIONS (4)
  - Skin exfoliation [Unknown]
  - Erythema [Unknown]
  - Skin irritation [Unknown]
  - Skin burning sensation [Unknown]
